FAERS Safety Report 23465628 (Version 2)
Quarter: 2024Q3

REPORT INFORMATION
  Report Type: Spontaneous
  Country: BE (occurrence: BE)
  Receive Date: 20240201
  Receipt Date: 20240808
  Transmission Date: 20241016
  Serious: Yes (Other)
  Sender: GLAXOSMITHKLINE
  Company Number: BE-GLAXOSMITHKLINE-BE2023EME151295

PATIENT

DRUGS (1)
  1. NUCALA [Suspect]
     Active Substance: MEPOLIZUMAB
     Indication: Chronic rhinosinusitis with nasal polyps
     Dosage: 100 MG, MO
     Route: 058
     Dates: start: 20230727

REACTIONS (3)
  - Nasal abscess [Unknown]
  - Arthralgia [Unknown]
  - Osteoarthritis [Unknown]
